FAERS Safety Report 6137734-7 (Version None)
Quarter: 2009Q1

REPORT INFORMATION
  Report Type: 
  Country: None (occurrence: None)
  Receive Date: 20090331
  Receipt Date: 20090326
  Transmission Date: 20090719
  Serious: Yes (Death)
  Sender: FDA-Public Use
  Company Number: US-CELGENEUS-163-21880-09030269

PATIENT
  Sex: Male

DRUGS (2)
  1. REVLIMID [Suspect]
     Route: 048
     Dates: start: 20080922, end: 20081101
  2. REVLIMID [Suspect]
     Route: 048
     Dates: start: 20080910, end: 20080901

REACTIONS (1)
  - NEOPLASM PROGRESSION [None]
